FAERS Safety Report 7332698-2 (Version None)
Quarter: 2011Q1

REPORT INFORMATION
  Report Type: 
  Country: None (occurrence: None)
  Receive Date: 20110304
  Receipt Date: 20110221
  Transmission Date: 20110831
  Serious: Yes (Other)
  Sender: FDA-Public Use
  Company Number: PHHY2011GB14519

PATIENT
  Sex: Female
  Weight: 64 kg

DRUGS (5)
  1. CO-CODAMOL [Suspect]
     Indication: PAIN
     Dosage: 2 DF, PRN
     Dates: start: 20090106
  2. LYRICA [Suspect]
     Indication: PAIN
     Dosage: 2 DF, BID
     Dates: start: 20080815
  3. OMEPRAZOLE [Suspect]
     Dosage: 20 MG, QD
     Dates: start: 20081016
  4. FOLIC ACID [Suspect]
     Indication: PREGNANCY
     Dosage: 1 DF, QD
     Dates: start: 20090501
  5. HYDROXOCOBALAMIN [Suspect]
     Indication: VITAMIN B12 DEFICIENCY
     Dosage: 3 DF, QMO
     Dates: start: 20091216

REACTIONS (4)
  - DRUG EXPOSURE DURING PREGNANCY [None]
  - HAEMORRHAGE [None]
  - INFECTION [None]
  - PELVIC PAIN [None]
